FAERS Safety Report 7527056-1 (Version None)
Quarter: 2011Q2

REPORT INFORMATION
  Report Type: 
  Country: None (occurrence: None)
  Receive Date: 20110606
  Receipt Date: 20110603
  Transmission Date: 20111010
  Serious: Yes (Other)
  Sender: FDA-Public Use
  Company Number: US-UCBSA-034442

PATIENT
  Sex: Female
  Weight: 87 kg

DRUGS (6)
  1. CYMBALTA [Concomitant]
     Indication: FIBROMYALGIA
     Route: 048
     Dates: start: 20100729
  2. TRAMADOL HCL [Concomitant]
     Indication: FIBROMYALGIA
     Dosage: AS NEEDED
     Route: 048
     Dates: start: 20100909
  3. EXCEDRIN (MIGRAINE) [Concomitant]
     Indication: MIGRAINE
     Dosage: 2 TABS ONCE A DAY AS NEEDED (PRN)
     Route: 048
     Dates: start: 20101201
  4. BUPROPION HYDROCHLORIDE [Concomitant]
     Indication: DEPRESSION
     Route: 048
     Dates: start: 20101118
  5. VITAMIN TAB [Concomitant]
     Route: 058
     Dates: start: 20090910
  6. CIMZIA [Suspect]
     Indication: CROHN'S DISEASE
     Route: 058
     Dates: start: 20090129, end: 20110519

REACTIONS (3)
  - DECREASED APPETITE [None]
  - RECTAL ABSCESS [None]
  - DIARRHOEA [None]
